FAERS Safety Report 9257672 (Version 1)
Quarter: 2013Q1

REPORT INFORMATION
  Report Type: Spontaneous
  Country: US (occurrence: None)
  Receive Date: 20121212
  Receipt Date: 20121212
  Transmission Date: 20140127
  Serious: No
  Sender: FDA-Public Use
  Company Number: 1209USA005394

PATIENT
  Age: 27 Year
  Sex: Male

DRUGS (3)
  1. PEGINTRON (PEGINTERFERON ALFA-2B)POWDER FOR INJECTION [Suspect]
     Indication: HEPATITIS C
     Dates: start: 20120326
  2. REBETOL (RIBAVIRIN)CAPSULE [Suspect]
     Indication: HEPATITIS C
     Dates: start: 20120326
  3. VICTRELIS (BOCEPREVIR)CAPSULE [Suspect]
     Indication: HEPATITIS C
     Dates: start: 20120423

REACTIONS (9)
  - Compulsions [None]
  - White blood cell count decreased [None]
  - Irritability [None]
  - Red blood cell count decreased [None]
  - Insomnia [None]
  - Anaemia [None]
  - Confusional state [None]
  - Malaise [None]
  - Fatigue [None]
